FAERS Safety Report 19521534 (Version 1)
Quarter: 2021Q3

REPORT INFORMATION
  Report Type: Spontaneous
  Country: US (occurrence: US)
  Receive Date: 20210712
  Receipt Date: 20210712
  Transmission Date: 20211014
  Serious: No
  Sender: FDA-Public Use
  Company Number: US-BRISTOL-MYERS SQUIBB COMPANY-BMS-2021-066919

PATIENT
  Age: 79 Year
  Sex: Male
  Weight: 89 kg

DRUGS (9)
  1. YERVOY [Suspect]
     Active Substance: IPILIMUMAB
     Indication: METASTATIC MALIGNANT MELANOMA
     Dosage: 200 MILLIGRAM
     Dates: start: 20210527
  2. YERVOY [Suspect]
     Active Substance: IPILIMUMAB
     Dosage: 200 UNK
     Route: 042
     Dates: start: 20210707
  3. YERVOY [Suspect]
     Active Substance: IPILIMUMAB
     Dosage: 50 MILLIGRAM
     Route: 042
     Dates: start: 20210707
  4. OPDIVO [Suspect]
     Active Substance: NIVOLUMAB
     Dosage: 100 MILLIGRAM
     Route: 065
     Dates: start: 20210707
  5. OPDIVO [Suspect]
     Active Substance: NIVOLUMAB
     Indication: METASTATIC MALIGNANT MELANOMA
     Dosage: 100 MILLIGRAM
     Route: 065
     Dates: start: 20210527
  6. YERVOY [Suspect]
     Active Substance: IPILIMUMAB
     Dosage: 50 MILLIGRAM
     Route: 042
     Dates: start: 20210527
  7. YERVOY [Suspect]
     Active Substance: IPILIMUMAB
     Dosage: 200 MILLIGRAM
     Route: 042
     Dates: start: 20210617
  8. YERVOY [Suspect]
     Active Substance: IPILIMUMAB
     Dosage: 50 MILLIGRAM
     Route: 042
     Dates: start: 20210617
  9. OPDIVO [Suspect]
     Active Substance: NIVOLUMAB
     Dosage: 100 MILLIGRAM
     Route: 065
     Dates: start: 20210617

REACTIONS (1)
  - Body temperature abnormal [Unknown]

NARRATIVE: CASE EVENT DATE: 20210707
